FAERS Safety Report 14284501 (Version 2)
Quarter: 2018Q1

REPORT INFORMATION
  Report Type: Spontaneous
  Country: US (occurrence: US)
  Receive Date: 20171214
  Receipt Date: 20180115
  Transmission Date: 20180509
  Serious: Yes (Death, Other)
  Sender: FDA-Public Use
  Company Number: US-DRREDDYS-USA/USA/17/0094989

PATIENT
  Age: 67 Year
  Sex: Male

DRUGS (2)
  1. PREDNISONE. [Suspect]
     Active Substance: PREDNISONE
     Indication: IMMUNOSUPPRESSANT DRUG THERAPY
     Route: 065
  2. TACROLIMUS. [Suspect]
     Active Substance: TACROLIMUS
     Indication: IMMUNOSUPPRESSANT DRUG THERAPY
     Route: 065

REACTIONS (11)
  - Death [Fatal]
  - Septic shock [Unknown]
  - Pancytopenia [Unknown]
  - Klebsiella bacteraemia [Unknown]
  - Cytopenia [Unknown]
  - Mental status changes [Unknown]
  - Neutrophil count decreased [Unknown]
  - Multiple organ dysfunction syndrome [Unknown]
  - Tachypnoea [Unknown]
  - Trichosporon infection [Recovered/Resolved]
  - Syncope [Unknown]
